FAERS Safety Report 7091161-7 (Version None)
Quarter: 2010Q4

REPORT INFORMATION
  Report Type: 
  Country: None (occurrence: None)
  Receive Date: 20101109
  Receipt Date: 20101027
  Transmission Date: 20110411
  Serious: Yes (Other)
  Sender: FDA-Public Use
  Company Number: PHHY2010FR73886

PATIENT
  Age: 35 Year
  Sex: Female

DRUGS (3)
  1. EXTAVIA [Suspect]
     Indication: MULTIPLE SCLEROSIS
     Dosage: UNK
     Route: 058
     Dates: start: 20101001, end: 20101025
  2. PAROXETINE HCL [Concomitant]
  3. SOLU-MEDROL [Concomitant]
     Dosage: UNK
     Dates: end: 20101023

REACTIONS (4)
  - CHEST DISCOMFORT [None]
  - HEADACHE [None]
  - RESPIRATORY DISORDER [None]
  - VOMITING [None]
